FAERS Safety Report 4672651-0 (Version None)
Quarter: 2005Q2

REPORT INFORMATION
  Report Type: 
  Country: None (occurrence: None)
  Receive Date: 20050524
  Receipt Date: 20050503
  Transmission Date: 20051028
  Serious: Yes (Death)
  Sender: FDA-Public Use
  Company Number: MY-MERCK-0505MYS00009

PATIENT
  Sex: Female

DRUGS (4)
  1. CANCIDAS [Suspect]
     Indication: CANDIDIASIS
     Route: 051
     Dates: start: 20050501, end: 20050501
  2. CANCIDAS [Suspect]
     Route: 051
     Dates: start: 20050502, end: 20050503
  3. FLUCONAZOLE [Concomitant]
     Route: 065
  4. AMPHOTERICIN B [Concomitant]
     Route: 065

REACTIONS (1)
  - ACUTE MYELOID LEUKAEMIA [None]
